FAERS Safety Report 7399697-6 (Version None)
Quarter: 2011Q2

REPORT INFORMATION
  Report Type: 
  Country: None (occurrence: None)
  Receive Date: 20110407
  Receipt Date: 20110323
  Transmission Date: 20111010
  Serious: Yes (Other)
  Sender: FDA-Public Use
  Company Number: CA-JNJFOC-20110402471

PATIENT
  Sex: Female

DRUGS (3)
  1. MATERNA [Concomitant]
     Route: 064
  2. REMICADE [Suspect]
     Indication: DRUG EXPOSURE DURING PREGNANCY
     Route: 064
  3. BENADRYL [Concomitant]
     Route: 064

REACTIONS (3)
  - SMALL FOR DATES BABY [None]
  - PREMATURE BABY [None]
  - REFLUX NEPHROPATHY [None]
